FAERS Safety Report 8593757-X (Version None)
Quarter: 2012Q3

REPORT INFORMATION
  Report Type: 
  Country: None (occurrence: None)
  Receive Date: 20120814
  Receipt Date: 20120808
  Transmission Date: 20120928
  Serious: Yes (Other)
  Sender: FDA-Public Use
  Company Number: DE-BAXTER-2012BAX014210

PATIENT
  Age: 62 Year
  Sex: Female

DRUGS (14)
  1. METHYLPREDNISOLONE [Concomitant]
     Route: 048
  2. TRAMADOL HCL [Concomitant]
  3. KIOVIG [Suspect]
     Indication: OFF LABEL USE
  4. PREDNISOLONE [Concomitant]
     Route: 048
  5. DEXAMETHASONE [Concomitant]
     Route: 042
  6. BETAMETHASONE VALERATE [Concomitant]
     Route: 061
  7. CARBAMAZEPINE [Concomitant]
  8. ASPIRIN [Concomitant]
  9. NITRENDIPINE [Concomitant]
  10. DAPSONE [Concomitant]
  11. AZATHIOPRINE SODIUM [Concomitant]
  12. KIOVIG [Suspect]
     Dosage: 2 G/KG
     Route: 042
  13. HYDROCHLOROTHIAZIDE [Concomitant]
     Indication: HYPERTENSION
  14. PREDNISOLONE [Concomitant]
     Route: 048

REACTIONS (1)
  - THERAPEUTIC PRODUCT INEFFECTIVE FOR UNAPPROVED INDICATION [None]
